FAERS Safety Report 8137995-9 (Version None)
Quarter: 2012Q1

REPORT INFORMATION
  Report Type: 
  Country: None (occurrence: None)
  Receive Date: 20120215
  Receipt Date: 20120210
  Transmission Date: 20120608
  Serious: Yes (Other)
  Sender: FDA-Public Use
  Company Number: US-PFIZER INC-2012037995

PATIENT
  Age: 45 Year
  Sex: Female

DRUGS (1)
  1. ZOSYN [Suspect]
     Indication: ABDOMINAL INFECTION
     Dosage: UNK

REACTIONS (4)
  - ANGIOEDEMA [None]
  - SWELLING FACE [None]
  - ERYTHEMA [None]
  - RESPIRATORY TRACT OEDEMA [None]
